FAERS Safety Report 7834244-3 (Version None)
Quarter: 2011Q4

REPORT INFORMATION
  Report Type: 
  Country: None (occurrence: None)
  Receive Date: 20111024
  Receipt Date: 20111021
  Transmission Date: 20120403
  Serious: Yes (Death, Other)
  Sender: FDA-Public Use
  Company Number: PHHY2010DE77023

PATIENT
  Sex: Male
  Weight: 75 kg

DRUGS (2)
  1. ANTIDEPRESSANTS [Concomitant]
  2. EXELON [Suspect]
     Indication: DEMENTIA
     Dosage: 4.5 MG, UNK
     Route: 048
     Dates: start: 20080101

REACTIONS (1)
  - COLON CANCER [None]
